FAERS Safety Report 23840940 (Version 7)
Quarter: 2025Q1

REPORT INFORMATION
  Report Type: Report from Study
  Country: US (occurrence: US)
  Receive Date: 20240510
  Receipt Date: 20250224
  Transmission Date: 20250409
  Serious: Yes (Hospitalization, Other)
  Sender: INSMED
  Company Number: US-INSMED, INC.-2024-01311-US

PATIENT
  Sex: Female

DRUGS (4)
  1. ARIKAYCE [Suspect]
     Active Substance: AMIKACIN
     Indication: Bronchiectasis
     Dosage: 590 MILLIGRAM, TIW
     Route: 055
     Dates: start: 20240327, end: 2024
  2. ARIKAYCE [Suspect]
     Active Substance: AMIKACIN
     Indication: Pseudomonas infection
     Dosage: 590 MILLIGRAM, TIW
     Route: 055
     Dates: start: 2024, end: 20250211
  3. AMIKACIN [Concomitant]
     Active Substance: AMIKACIN
     Indication: Product used for unknown indication
     Route: 042
  4. TOBRAMYCIN [Concomitant]
     Active Substance: TOBRAMYCIN
     Indication: Product used for unknown indication
     Dosage: UNK, TIW
     Route: 055

REACTIONS (13)
  - Lung disorder [Unknown]
  - Hospitalisation [Unknown]
  - Hospitalisation [Unknown]
  - Pneumonia pseudomonal [Unknown]
  - Pneumonia [Unknown]
  - Chronic obstructive pulmonary disease [Not Recovered/Not Resolved]
  - Dyspnoea [Not Recovered/Not Resolved]
  - Condition aggravated [Unknown]
  - Drug intolerance [Unknown]
  - Illness [Unknown]
  - Off label use [Unknown]
  - Therapy interrupted [Unknown]
  - Device physical property issue [Unknown]

NARRATIVE: CASE EVENT DATE: 20240101
